FAERS Safety Report 4726082-5 (Version None)
Quarter: 2005Q3

REPORT INFORMATION
  Report Type: 
  Country: None (occurrence: None)
  Receive Date: 20050725
  Receipt Date: 20050719
  Transmission Date: 20060218
  Serious: Yes (Death, Hospitalization, Other)
  Sender: FDA-Public Use
  Company Number: USA-2005-0019660

PATIENT
  Age: 46 Year
  Sex: Male

DRUGS (7)
  1. PALLADONE [Suspect]
     Indication: PAIN
     Dosage: 24 MG, Q24H, ORAL
     Route: 048
     Dates: start: 20050228, end: 20050401
  2. PHENOBARBITAL TAB [Concomitant]
  3. NEURONTIN [Concomitant]
  4. DILAUDID [Concomitant]
  5. SOMA [Concomitant]
  6. REMERON [Concomitant]
  7. VALIUM [Concomitant]

REACTIONS (2)
  - CONDITION AGGRAVATED [None]
  - CONVULSION [None]
